FAERS Safety Report 4405047-7 (Version None)
Quarter: 2004Q2

REPORT INFORMATION
  Report Type: 
  Country: None (occurrence: None)
  Receive Date: 20040621
  Receipt Date: 20040311
  Transmission Date: 20050107
  Serious: No
  Sender: FDA-Public Use
  Company Number: A-US2004-05441

PATIENT
  Sex: Female

DRUGS (1)
  1. TRACLEER [Suspect]

REACTIONS (1)
  - HOT FLUSH [None]
